FAERS Safety Report 6236456-1 (Version None)
Quarter: 2009Q2

REPORT INFORMATION
  Report Type: 
  Country: None (occurrence: None)
  Receive Date: 20090619
  Receipt Date: 20090611
  Transmission Date: 20091009
  Serious: Yes (Other)
  Sender: FDA-Public Use
  Company Number: US-ASTRAZENECA-2009UW03748

PATIENT
  Age: 497 Month
  Sex: Male

DRUGS (5)
  1. SEROQUEL [Suspect]
     Indication: INSOMNIA
     Dosage: 100 TO 400 MG
     Route: 048
     Dates: start: 20060101, end: 20080201
  2. SEROQUEL [Suspect]
     Indication: DEPRESSION
     Dosage: 100 TO 400 MG
     Route: 048
     Dates: start: 20060101, end: 20080201
  3. RISPERDAL [Concomitant]
     Dates: start: 20080101
  4. STELAZINE [Concomitant]
     Dates: start: 20090101
  5. PROLIXIN [Concomitant]
     Dates: start: 20070101

REACTIONS (4)
  - BLINDNESS TRANSIENT [None]
  - BLOOD CHOLESTEROL INCREASED [None]
  - DIABETES MELLITUS [None]
  - STRESS [None]
